FAERS Safety Report 6010347-3 (Version None)
Quarter: 2008Q4

REPORT INFORMATION
  Report Type: 
  Country: None (occurrence: None)
  Receive Date: 20081218
  Receipt Date: 20080918
  Transmission Date: 20090506
  Serious: No
  Sender: FDA-Public Use
  Company Number: A0748151A

PATIENT
  Sex: Female

DRUGS (5)
  1. FLONASE [Suspect]
     Indication: SINUS DISORDER
     Dosage: 2SPR UNKNOWN
     Route: 045
  2. VERAMYST [Suspect]
     Indication: SINUS DISORDER
     Route: 045
     Dates: start: 20080201, end: 20080101
  3. NASACORT [Concomitant]
  4. PATANOL [Concomitant]
  5. CLARITIN [Concomitant]

REACTIONS (6)
  - DRUG INEFFECTIVE [None]
  - NASAL SEPTUM DEVIATION [None]
  - RETCHING [None]
  - RHINORRHOEA [None]
  - SINUS OPERATION [None]
  - THERAPEUTIC RESPONSE DECREASED [None]
